FAERS Safety Report 23738697 (Version 1)
Quarter: 2024Q2

REPORT INFORMATION
  Report Type: Spontaneous
  Country: PL (occurrence: PL)
  Receive Date: 20240412
  Receipt Date: 20240412
  Transmission Date: 20240716
  Serious: Yes (Other)
  Sender: FDA-Public Use
  Company Number: None

PATIENT
  Age: 34 Year
  Sex: Male
  Weight: 75 kg

DRUGS (2)
  1. ACITRETIN [Suspect]
     Active Substance: ACITRETIN
     Indication: Hidradenitis
     Route: 048
     Dates: start: 20230515
  2. ACITRETIN [Suspect]
     Active Substance: ACITRETIN
     Indication: Hidradenitis
     Route: 048
     Dates: end: 202308

REACTIONS (3)
  - Headache [Recovered/Resolved]
  - Depression [Recovered/Resolved]
  - Mood swings [Recovered/Resolved]
